FAERS Safety Report 5087362-X (Version None)
Quarter: 2006Q3

REPORT INFORMATION
  Report Type: 
  Country: None (occurrence: None)
  Receive Date: 20060824
  Receipt Date: 20060530
  Transmission Date: 20061208
  Serious: Yes (Death, Other)
  Sender: FDA-Public Use
  Company Number: US-AVENTIS-200614886US

PATIENT
  Sex: Male

DRUGS (10)
  1. LOVENOX [Suspect]
     Dosage: DOSE: UNK
  2. NOREPINEPHRINE BITARTRATE [Concomitant]
     Dosage: DOSE: UNK
  3. SODIUM CHLORIDE [Concomitant]
     Dosage: DOSE: UNK
  4. POTASSIUM CHLORIDE [Concomitant]
     Dosage: DOSE: UNK
  5. ACETAMINOPHEN [Concomitant]
     Dosage: DOSE: UNK
  6. ALBUTEROL SULFATE [Concomitant]
     Dosage: DOSE: UNK
  7. DESMOPRESSIN [Concomitant]
     Dosage: DOSE: UNK
  8. POTASSIUM PHOSPHATES [Concomitant]
     Dosage: DOSE: UNK
  9. CALCIUM GLUCONATE [Concomitant]
     Dosage: DOSE: UNK
  10. LANSOPRAZOLE [Concomitant]
     Dosage: DOSE: UNK

REACTIONS (20)
  - BLOOD GLUCOSE DECREASED [None]
  - BLOOD PRESSURE INCREASED [None]
  - BLOOD SODIUM INCREASED [None]
  - CEREBRAL HAEMORRHAGE [None]
  - COMA [None]
  - CONFUSIONAL STATE [None]
  - COUGH [None]
  - DIABETES INSIPIDUS [None]
  - DYSPNOEA [None]
  - FALL [None]
  - HAEMATEMESIS [None]
  - HAEMORRHAGE [None]
  - HAEMORRHAGE INTRACRANIAL [None]
  - HYPOTENSION [None]
  - IRRITABILITY [None]
  - LOSS OF CONSCIOUSNESS [None]
  - MYDRIASIS [None]
  - PUPILLARY REFLEX IMPAIRED [None]
  - SUBDURAL HAEMATOMA [None]
  - VENTRICULAR EXTRASYSTOLES [None]
